FAERS Safety Report 6739982-1 (Version None)
Quarter: 2010Q2

REPORT INFORMATION
  Report Type: 
  Country: None (occurrence: None)
  Receive Date: 20100525
  Receipt Date: 20100519
  Transmission Date: 20101027
  Serious: Yes (Hospitalization)
  Sender: FDA-Public Use
  Company Number: GB-ELI_LILLY_AND_COMPANY-GB201003007906

PATIENT
  Sex: Male
  Weight: 72.4 kg

DRUGS (26)
  1. GEMCITABINE HCL [Suspect]
     Indication: DIFFUSE LARGE B-CELL LYMPHOMA
     Dosage: 1330 MG, DAY 1
     Route: 042
     Dates: start: 20100319, end: 20100325
  2. GEMCITABINE HCL [Suspect]
     Dosage: 1282 MG, DAY 1
     Route: 042
     Dates: start: 20100409
  3. CYCLOPHOSPHAMIDE [Suspect]
     Indication: DIFFUSE LARGE B-CELL LYMPHOMA
     Dosage: 1300 MG, DAY 1
     Route: 042
     Dates: start: 20100319
  4. VINCRISTINE [Suspect]
     Indication: DIFFUSE LARGE B-CELL LYMPHOMA
     Dosage: 2 MG, ON DAY 1
     Route: 042
     Dates: start: 20100319
  5. RITUXIMAB [Suspect]
     Indication: DIFFUSE LARGE B-CELL LYMPHOMA
     Dosage: 650 MG, DAY 1
     Route: 042
     Dates: start: 20100318
  6. RITUXIMAB [Suspect]
     Dosage: 641 MG, DAY 1
     Route: 042
     Dates: start: 20100409
  7. PREDNISOLONE [Suspect]
     Indication: DIFFUSE LARGE B-CELL LYMPHOMA
     Dosage: 60 MG, UNK
     Route: 048
     Dates: start: 20100306, end: 20100319
  8. PREDNISOLONE [Suspect]
     Dosage: 30 MG, UNK
     Route: 048
     Dates: start: 20100320
  9. PREDNISOLONE [Suspect]
     Dosage: 15 MG, UNK
     Route: 048
     Dates: start: 20100323
  10. PREDNISOLONE [Suspect]
     Dosage: 5 MG, UNK
     Route: 048
     Dates: start: 20100324
  11. PREDNISOLONE [Suspect]
     Dosage: 100 MG, DAYS 1-5
     Route: 048
     Dates: start: 20100409
  12. PEGFILGRASTIM [Suspect]
     Indication: DIFFUSE LARGE B-CELL LYMPHOMA
     Dosage: 6 MG, ON DAY 11
     Route: 058
     Dates: start: 20100328
  13. PEGFILGRASTIM [Suspect]
     Dosage: 6 MG, ON DAY 11
     Route: 058
     Dates: start: 20100419
  14. DIAZEPAN [Concomitant]
     Indication: ANXIETY DISORDER
     Dosage: 2 MG, EACH EVENING
     Route: 048
     Dates: start: 20041214
  15. SIMVASTATIN [Concomitant]
     Indication: HYPERCHOLESTEROLAEMIA
     Dosage: 20 MG, EACH EVENING
     Route: 048
     Dates: start: 19961120, end: 20100323
  16. SIMVASTATIN [Concomitant]
     Dosage: 40 MG, EACH EVENING
     Route: 048
     Dates: start: 20100324
  17. ASPIRIN [Concomitant]
     Indication: ANTIINFLAMMATORY THERAPY
     Dosage: 75 MG, DAILY (1/D)
     Route: 048
     Dates: start: 20040528, end: 20100127
  18. NITROGLYCERIN [Concomitant]
     Dosage: 5 MG, DAILY (1/D)
     Dates: start: 20041101, end: 20100101
  19. ALOPURINOL [Concomitant]
     Dosage: 300 MG, DAILY (1/D)
     Route: 048
     Dates: start: 20061101, end: 20100101
  20. RAMIPRIL [Concomitant]
     Dosage: 5 MG, DAILY (1/D)
     Route: 048
     Dates: start: 20040901, end: 20100101
  21. ACYCLOVIR [Concomitant]
     Indication: ANTIVIRAL TREATMENT
     Dosage: 400 MG, 2/D
     Route: 048
     Dates: start: 20100323
  22. FLUCONAZOLE [Concomitant]
     Indication: ANTIFUNGAL TREATMENT
     Dosage: 100 MG, DAILY (1/D)
     Dates: start: 20100323
  23. NICORANDIL [Concomitant]
     Dosage: 10 MG, 2/D
     Dates: start: 20100301
  24. CHLORHEXIDINE MOUTHWASH [Concomitant]
     Dosage: UNK, 4/D
     Route: 048
     Dates: start: 20100301
  25. RANITIDINE [Concomitant]
     Indication: PROPHYLAXIS
     Dosage: 150 MG, UNK
     Route: 048
     Dates: start: 19960101, end: 20100101
  26. DOMPERIDONE [Concomitant]
     Indication: NAUSEA
     Dosage: 20 MG, UNK
     Route: 048
     Dates: start: 20100319

REACTIONS (2)
  - FEBRILE NEUTROPENIA [None]
  - PYREXIA [None]
